FAERS Safety Report 7252801-2 (Version None)
Quarter: 2011Q1

REPORT INFORMATION
  Report Type: 
  Country: None (occurrence: None)
  Receive Date: 20110129
  Receipt Date: 20100125
  Transmission Date: 20110831
  Serious: No
  Sender: FDA-Public Use
  Company Number: US-ABBOTT-10P-163-0621933-00

PATIENT
  Sex: Female
  Weight: 37.5 kg

DRUGS (2)
  1. HUMIRA [Suspect]
     Indication: CROHN'S DISEASE
     Dates: start: 20090901
  2. PREVACID [Concomitant]
     Indication: GASTROOESOPHAGEAL REFLUX DISEASE

REACTIONS (11)
  - VOMITING [None]
  - NAUSEA [None]
  - ADVERSE REACTION [None]
  - INJECTION SITE PAIN [None]
  - PARAESTHESIA [None]
  - DYSPNOEA [None]
  - TREMOR [None]
  - OROPHARYNGEAL PAIN [None]
  - MUSCLE TWITCHING [None]
  - PAIN [None]
  - DIZZINESS [None]
